FAERS Safety Report 13736717 (Version 1)
Quarter: 2017Q3

REPORT INFORMATION
  Report Type: Spontaneous
  Country: US (occurrence: US)
  Receive Date: 20170710
  Receipt Date: 20170710
  Transmission Date: 20171127
  Serious: Yes (Death, Hospitalization)
  Sender: FDA-Public Use
  Company Number: None

PATIENT
  Age: 69 Year
  Sex: Male
  Weight: 63.5 kg

DRUGS (1)
  1. WARFARIN [Suspect]
     Active Substance: WARFARIN
     Indication: PERIPHERAL VASCULAR DISORDER
     Route: 048
     Dates: start: 20170407, end: 20170627

REACTIONS (4)
  - Hypertensive emergency [None]
  - Coagulopathy [None]
  - Pulmonary oedema [None]
  - Haemorrhagic stroke [None]

NARRATIVE: CASE EVENT DATE: 20170627
